FAERS Safety Report 4649002-0 (Version None)
Quarter: 2005Q2

REPORT INFORMATION
  Report Type: 
  Country: None (occurrence: None)
  Receive Date: 20050429
  Receipt Date: 20050114
  Transmission Date: 20051028
  Serious: Yes (Other)
  Sender: FDA-Public Use
  Company Number: US-ROCHE-392723

PATIENT
  Age: 16 Year
  Sex: Male
  Weight: 90.7 kg

DRUGS (1)
  1. ACCUTANE [Suspect]
     Indication: DRUG USE FOR UNKNOWN INDICATION
     Dosage: TAKEN DAILY.
     Route: 048
     Dates: start: 19980111, end: 19990101

REACTIONS (4)
  - EPIPHYSES PREMATURE FUSION [None]
  - IMPAIRED HEALING [None]
  - SCAR [None]
  - WRIST FRACTURE [None]
